FAERS Safety Report 5136848-8 (Version None)
Quarter: 2006Q4

REPORT INFORMATION
  Report Type: 
  Country: None (occurrence: None)
  Receive Date: 20061023
  Receipt Date: 20061010
  Transmission Date: 20070319
  Serious: Yes (Other)
  Sender: FDA-Public Use
  Company Number: 2006126915

PATIENT

DRUGS (1)
  1. LYRICA [Suspect]
     Dosage: 150 MG (75 MG, 2 IN 1), ORAL
     Route: 048

REACTIONS (2)
  - MYOCLONUS [None]
  - PARTIAL SEIZURES [None]
